FAERS Safety Report 23433472 (Version 1)
Quarter: 2024Q1

REPORT INFORMATION
  Report Type: Spontaneous
  Country: CN (occurrence: CN)
  Receive Date: 20240123
  Receipt Date: 20240123
  Transmission Date: 20240410
  Serious: Yes (Hospitalization, Other)
  Sender: FDA-Public Use
  Company Number: CN-BAYER-2024A012804

PATIENT
  Age: 56 Year
  Sex: Female
  Weight: 60 kg

DRUGS (1)
  1. STIVARGA [Suspect]
     Active Substance: REGORAFENIB
     Indication: Hepatic cancer
     Dosage: 160 MG, QD
     Route: 048
     Dates: start: 20231227, end: 20240115

REACTIONS (9)
  - Hepatic encephalopathy [Not Recovered/Not Resolved]
  - Platelet aggregation inhibition [Not Recovered/Not Resolved]
  - Unresponsive to stimuli [None]
  - Coma [None]
  - Poverty of speech [None]
  - Reduced facial expression [None]
  - Sleep disorder [None]
  - Disorientation [None]
  - Cognitive disorder [None]

NARRATIVE: CASE EVENT DATE: 20240104
